FAERS Safety Report 8315232 (Version 4)
Quarter: 2012Q4

REPORT INFORMATION
  Report Type: 
  Country: AU (occurrence: AU)
  Receive Date: 20111229
  Receipt Date: 20121011
  Transmission Date: 20130627
  Serious: Yes (Other)
  Sender: FDA-Public Use
  Company Number: PHNR2007AU01968

PATIENT
  Age: 18 Year
  Sex: Male

DRUGS (4)
  1. CLOZARIL [Suspect]
     Indication: SCHIZOPHRENIA
     Dosage: 200 mg
     Route: 048
     Dates: start: 20070917, end: 20071003
  2. CLOZARIL [Suspect]
     Dosage: 200 mg, daily
     Dates: start: 200712
  3. CLOZARIL [Suspect]
     Dosage: 75 mg
     Dates: start: 20120403, end: 20120415
  4. CLOZARIL [Suspect]
     Dosage: 200 mg
     Dates: end: 20120416

REACTIONS (21)
  - Bradycardia [Unknown]
  - Right atrial dilatation [Unknown]
  - Left atrial dilatation [Unknown]
  - Myocarditis [Recovered/Resolved]
  - Pericarditis [Unknown]
  - Blood creatine phosphokinase increased [Unknown]
  - Pericardial effusion [Recovered/Resolved]
  - Troponin increased [Recovered/Resolved]
  - Electrocardiogram abnormal [Unknown]
  - ECG signs of myocardial ischaemia [Unknown]
  - Electrocardiogram ST segment elevation [Unknown]
  - Electrocardiogram repolarisation abnormality [Unknown]
  - Electrocardiogram T wave abnormal [Unknown]
  - QRS axis abnormal [Unknown]
  - Tachycardia [Unknown]
  - Sinus tachycardia [Unknown]
  - Psychotic disorder [Unknown]
  - Blood cholesterol increased [Unknown]
  - Eosinophilia [Unknown]
  - Weight increased [Unknown]
  - Salivary hypersecretion [Unknown]
